FAERS Safety Report 18043587 (Version 2)
Quarter: 2020Q3

REPORT INFORMATION
  Report Type: Report from Study
  Country: IT (occurrence: IT)
  Receive Date: 20200720
  Receipt Date: 20200724
  Transmission Date: 20201103
  Serious: Yes (Hospitalization)
  Sender: FDA-Public Use
  Company Number: IT-ROCHE-2629389

PATIENT
  Age: 77 Year
  Sex: Male
  Weight: 67 kg

DRUGS (30)
  1. ATEZOLIZUMAB. [Suspect]
     Active Substance: ATEZOLIZUMAB
     Indication: SMALL CELL LUNG CANCER EXTENSIVE STAGE
     Dosage: DATE OF MOST RECENT DOSE OF ATEZOLIZUMAB PRIOR TO AE AND SAE ONSET: ON 26/MAY/2020, AT 10.15
     Route: 041
     Dates: start: 20200303
  2. SOLDESAM [Concomitant]
     Active Substance: DEXAMETHASONE
     Dates: start: 20200324, end: 20200324
  3. PALONOSETRON. [Concomitant]
     Active Substance: PALONOSETRON HYDROCHLORIDE
     Dates: start: 20200414, end: 20200414
  4. PHOSPHOMYCIN [Concomitant]
     Dates: start: 20200414, end: 20200415
  5. KCL RETARD [Concomitant]
     Active Substance: POTASSIUM CHLORIDE
     Indication: HYPOKALAEMIA
     Dates: start: 20200616
  6. SOLDESAM [Concomitant]
     Active Substance: DEXAMETHASONE
     Dates: start: 20200325, end: 20200326
  7. PALONOSETRON. [Concomitant]
     Active Substance: PALONOSETRON HYDROCHLORIDE
     Dates: start: 20200505, end: 20200505
  8. SOLDESAM [Concomitant]
     Active Substance: DEXAMETHASONE
     Dates: start: 20200415, end: 20200416
  9. PLASIL [Concomitant]
     Active Substance: METOCLOPRAMIDE HYDROCHLORIDE
     Dates: start: 20200303, end: 20200521
  10. PANTOPRAZOLE [Concomitant]
     Active Substance: PANTOPRAZOLE
     Indication: GASTROINTESTINAL DISORDER PROPHYLAXIS
     Dates: start: 20200303
  11. FOLINGRAV [Concomitant]
     Indication: ANAEMIA
     Dates: start: 20200526
  12. PALONOSETRON. [Concomitant]
     Active Substance: PALONOSETRON HYDROCHLORIDE
     Dates: start: 20200303, end: 20200303
  13. ASPIRINETTA [Concomitant]
     Active Substance: ASPIRIN
     Dates: start: 2015
  14. PALONOSETRON. [Concomitant]
     Active Substance: PALONOSETRON HYDROCHLORIDE
     Dates: start: 20200324, end: 20200324
  15. CARBOPLATIN. [Suspect]
     Active Substance: CARBOPLATIN
     Indication: SMALL CELL LUNG CANCER EXTENSIVE STAGE
     Dosage: DATE OF MOST RECENT DOSE OF CARBOPLATIN PRIOR TO AE AND SAE ONSET: ON 05/MAY/2020, AT 11.50
     Route: 042
     Dates: start: 20200303
  16. SOLDESAM [Concomitant]
     Active Substance: DEXAMETHASONE
     Dates: start: 20200414, end: 20200414
  17. SOLDESAM [Concomitant]
     Active Substance: DEXAMETHASONE
     Dates: start: 20200304, end: 20200305
  18. SOLDESAM [Concomitant]
     Active Substance: DEXAMETHASONE
     Dates: start: 20200505, end: 20200505
  19. SOLDESAM [Concomitant]
     Active Substance: DEXAMETHASONE
     Dates: start: 20200506, end: 20200507
  20. POLASE [Concomitant]
     Active Substance: MAGNESIUM ASPARTATE\POTASSIUM ASPARTATE
     Dates: start: 20200709
  21. ETOPOSIDE. [Suspect]
     Active Substance: ETOPOSIDE
     Indication: SMALL CELL LUNG CANCER EXTENSIVE STAGE
     Dosage: DATE OF MOST RECENT DOSE OF ETOPOSIDE PRIOR TO AE AND SAE ONSET: 07/MAY/2020,AT 11.00
     Route: 042
     Dates: start: 20200303
  22. ZARZIO [Concomitant]
     Active Substance: FILGRASTIM
     Dates: start: 20200422, end: 20200425
  23. SOLDESAM [Concomitant]
     Active Substance: DEXAMETHASONE
     Dates: start: 20200303, end: 20200303
  24. LEVOLAC [Concomitant]
     Active Substance: LACTULOSE
     Dates: start: 20200521
  25. ZARZIO [Concomitant]
     Active Substance: FILGRASTIM
     Dates: start: 20200511, end: 20200515
  26. ZARZIO [Concomitant]
     Active Substance: FILGRASTIM
     Dates: start: 20200311, end: 20200315
  27. LOPERAMIDE [Concomitant]
     Active Substance: LOPERAMIDE
     Dates: start: 20200303, end: 20200521
  28. LEVOFLOXACIN. [Concomitant]
     Active Substance: LEVOFLOXACIN
     Indication: COUGH
     Dates: start: 20200521, end: 20200525
  29. ZARZIO [Concomitant]
     Active Substance: FILGRASTIM
     Indication: BLOOD DISORDER PROPHYLAXIS
     Dates: start: 20200401, end: 20200405
  30. BLOOD TRANSFUSION [Concomitant]
     Active Substance: HUMAN RED BLOOD CELL
     Indication: ANAEMIA
     Dates: start: 20200519, end: 20200519

REACTIONS (1)
  - Encephalitis autoimmune [Recovering/Resolving]

NARRATIVE: CASE EVENT DATE: 20200502
